FAERS Safety Report 21903845 (Version 3)
Quarter: 2024Q4

REPORT INFORMATION
  Report Type: Spontaneous
  Country: US (occurrence: US)
  Receive Date: 20230124
  Receipt Date: 20241231
  Transmission Date: 20250114
  Serious: No
  Sender: PFIZER
  Company Number: US-PFIZER INC-PV202300014402

PATIENT
  Age: 71 Year
  Sex: Female

DRUGS (1)
  1. IBRANCE [Suspect]
     Active Substance: PALBOCICLIB
     Indication: Hormone receptor positive breast cancer
     Dosage: 75MG DAILY, DAY 1-21 OF EACH 28 DAY CYCLE (WITH OR WITHOUT FOOD)
     Route: 048

REACTIONS (2)
  - Neoplasm progression [Unknown]
  - Off label use [Unknown]
